FAERS Safety Report 9568039 (Version 1)
Quarter: 2013Q3

REPORT INFORMATION
  Report Type: Spontaneous
  Country: US (occurrence: US)
  Receive Date: 20130930
  Receipt Date: 20130930
  Transmission Date: 20140515
  Serious: No
  Sender: FDA-Public Use
  Company Number: US-AMGEN-USASP2013056930

PATIENT
  Age: 48 Year
  Sex: Male
  Weight: 167.8 kg

DRUGS (6)
  1. ENBREL [Suspect]
     Indication: PRODUCT USED FOR UNKNOWN INDICATION
     Dosage: 50 MG, 2 TIMES/WK
     Route: 058
  2. KLONOPIN [Concomitant]
     Dosage: 1 MG, UNK
     Route: 048
  3. EFFEXOR [Concomitant]
     Dosage: 37.5 MG, UNK
     Route: 048
  4. FLEXERIL                           /00428402/ [Concomitant]
     Dosage: 5 MG, UNK
     Route: 048
  5. LORTAB                             /00607101/ [Concomitant]
     Dosage: 5 UNK, UNK
     Route: 048
  6. BENICAR [Concomitant]
     Dosage: 20 MG, UNK
     Route: 048

REACTIONS (1)
  - Psoriasis [Unknown]
